FAERS Safety Report 16711246 (Version 1)
Quarter: 2019Q4

REPORT INFORMATION
  Report Type: Spontaneous
  Country: US (occurrence: US)
  Receive Date: 20190816
  Receipt Date: 20190816
  Transmission Date: 20200122
  Serious: Yes (Hospitalization)
  Sender: FDA-Public Use
  Company Number: None

PATIENT
  Age: 65 Year
  Sex: Male

DRUGS (21)
  1. COLISTIMETHATE [Suspect]
     Active Substance: COLISTIMETHATE SODIUM
     Indication: ASTHMA
     Route: 055
     Dates: start: 20190302
  2. ALBUTEROL. [Concomitant]
     Active Substance: ALBUTEROL
  3. ALLOPURINOL. [Concomitant]
     Active Substance: ALLOPURINOL
  4. CIPROFLOXACIN. [Concomitant]
     Active Substance: CIPROFLOXACIN
  5. DICYCLOMINE [Concomitant]
     Active Substance: DICYCLOMINE HYDROCHLORIDE
  6. LACTAID [Concomitant]
     Active Substance: LACTASE
  7. MONTELUKAST [Concomitant]
     Active Substance: MONTELUKAST SODIUM
  8. PREDNISONE. [Concomitant]
     Active Substance: PREDNISONE
  9. GABAPENTIN. [Concomitant]
     Active Substance: GABAPENTIN
  10. LEVAQUIN [Concomitant]
     Active Substance: LEVOFLOXACIN
  11. LISINOPRIL AND HYDROCHLOROTHIAZIDE [Concomitant]
     Active Substance: HYDROCHLOROTHIAZIDE\LISINOPRIL
  12. QVAR REDIHA [Concomitant]
  13. ZYRTEC [Concomitant]
     Active Substance: CETIRIZINE HYDROCHLORIDE
  14. BREO ELLIPTA [Concomitant]
     Active Substance: FLUTICASONE FUROATE\VILANTEROL TRIFENATATE
  15. SPIRIVA [Concomitant]
     Active Substance: TIOTROPIUM BROMIDE MONOHYDRATE
  16. VENTOLIN HFAAER [Concomitant]
  17. AZELASTINE. [Concomitant]
     Active Substance: AZELASTINE HYDROCHLORIDE
  18. FAMOTIDINE. [Concomitant]
     Active Substance: FAMOTIDINE
  19. COLESEVELAM [Concomitant]
     Active Substance: COLESEVELAM
  20. PREDNISOLONE. [Concomitant]
     Active Substance: PREDNISOLONE
  21. LISINOPRIL. [Concomitant]
     Active Substance: LISINOPRIL

REACTIONS (1)
  - Pneumothorax [None]

NARRATIVE: CASE EVENT DATE: 20190622
